FAERS Safety Report 9397353 (Version 1)
Quarter: 2013Q3

REPORT INFORMATION
  Report Type: Spontaneous
  Country: US (occurrence: None)
  Receive Date: 20130711
  Receipt Date: 20130711
  Transmission Date: 20140515
  Serious: Yes (Hospitalization)
  Sender: FDA-Public Use
  Company Number: None

PATIENT
  Age: 63 Year
  Sex: Male

DRUGS (1)
  1. IBUPROFEN [Suspect]
     Indication: PAIN
     Dosage: MG  QID  PO
     Route: 048
     Dates: start: 20130424, end: 20130501

REACTIONS (5)
  - Haemorrhage [None]
  - Melaena [None]
  - Dizziness [None]
  - Dizziness [None]
  - Muscular weakness [None]
